FAERS Safety Report 8990077 (Version 1)
Quarter: 2012Q4

REPORT INFORMATION
  Report Type: 
  Country: US (occurrence: US)
  Receive Date: 20121228
  Receipt Date: 20121228
  Transmission Date: 20130627
  Serious: Yes (Other)
  Sender: FDA-Public Use
  Company Number: US-ABBOTT-12P-163-1028207-00

PATIENT
  Age: 28 Year
  Sex: Female

DRUGS (1)
  1. ERYTHROMYCIN BASE FILMTAB [Suspect]
     Indication: PRODUCT USED FOR UNKNOWN INDICATION
     Route: 048
     Dates: start: 20121219, end: 20121220

REACTIONS (2)
  - Chest discomfort [Unknown]
  - Dyspnoea [Unknown]
